FAERS Safety Report 6107733-X (Version None)
Quarter: 2009Q1

REPORT INFORMATION
  Report Type: 
  Country: None (occurrence: None)
  Receive Date: 20090309
  Receipt Date: 20090227
  Transmission Date: 20090719
  Serious: Yes (Other)
  Sender: FDA-Public Use
  Company Number: A0767788A

PATIENT
  Age: 40 Year
  Sex: Female
  Weight: 144 kg

DRUGS (4)
  1. VALTREX [Suspect]
     Indication: DRUG USE FOR UNKNOWN INDICATION
     Dosage: 500MGD PER DAY
     Route: 048
  2. ACIPHEX [Concomitant]
     Dosage: 20MG PER DAY
     Route: 048
  3. MULTI-VITAMIN [Concomitant]
     Route: 048
  4. CALCIUM + VITAMIN D [Concomitant]

REACTIONS (3)
  - HEPATITIS [None]
  - IRON DEFICIENCY [None]
  - MACROCYTOSIS [None]
